FAERS Safety Report 8008065-5 (Version None)
Quarter: 2011Q4

REPORT INFORMATION
  Report Type: 
  Country: None (occurrence: None)
  Receive Date: 20111221
  Receipt Date: 20111209
  Transmission Date: 20120403
  Serious: Yes (Other)
  Sender: FDA-Public Use
  Company Number: AXC-2011-000524

PATIENT
  Age: 52 Year
  Sex: Male

DRUGS (5)
  1. LITHIUM CARBONATE [Suspect]
     Indication: PRODUCT USED FOR UNKNOWN INDICATION
  2. SULFASALAZINE [Suspect]
     Indication: PRODUCT USED FOR UNKNOWN INDICATION
  3. FLUCONAZOLE [Suspect]
     Indication: PRODUCT USED FOR UNKNOWN INDICATION
  4. DICYCLOMINE HYDROCHLORIDE [Suspect]
     Indication: PRODUCT USED FOR UNKNOWN INDICATION
  5. RANITIDINE HYDROCHLORIDE [Suspect]
     Indication: PRODUCT USED FOR UNKNOWN INDICATION

REACTIONS (13)
  - RENAL FAILURE [None]
  - SPEECH DISORDER [None]
  - MUCOSAL DRYNESS [None]
  - DRY SKIN [None]
  - DIET REFUSAL [None]
  - AGITATION [None]
  - BODY TEMPERATURE INCREASED [None]
  - HEART RATE INCREASED [None]
  - DRUG INTERACTION [None]
  - MENTAL STATUS CHANGES [None]
  - BLOOD PRESSURE INCREASED [None]
  - TOXICITY TO VARIOUS AGENTS [None]
  - HEADACHE [None]
